FAERS Safety Report 19615370 (Version 2)
Quarter: 2021Q3

REPORT INFORMATION
  Report Type: Spontaneous
  Country: US (occurrence: US)
  Receive Date: 20210727
  Receipt Date: 20210816
  Transmission Date: 20211014
  Serious: Yes (Other)
  Sender: FDA-Public Use
  Company Number: US-GLAXOSMITHKLINE-US2021159136

PATIENT
  Age: 58 Year
  Sex: Female

DRUGS (1)
  1. ZEJULA [Suspect]
     Active Substance: NIRAPARIB
     Indication: FALLOPIAN TUBE CANCER
     Dosage: 200 MG, QD
     Route: 048
     Dates: start: 20210715

REACTIONS (11)
  - Heart rate increased [Unknown]
  - Fatigue [Unknown]
  - Hypertension [Recovering/Resolving]
  - Burning sensation [Unknown]
  - Pain in extremity [Unknown]
  - Nausea [Unknown]
  - Neuropathy peripheral [Not Recovered/Not Resolved]
  - Abdominal pain [Unknown]
  - Condition aggravated [Unknown]
  - Back pain [Unknown]
  - Muscle spasms [Unknown]

NARRATIVE: CASE EVENT DATE: 202107
